FAERS Safety Report 25384921 (Version 1)
Quarter: 2025Q2

REPORT INFORMATION
  Report Type: Spontaneous
  Country: US (occurrence: None)
  Receive Date: 20250530
  Receipt Date: 20250530
  Transmission Date: 20250717
  Serious: Yes (Hospitalization)
  Sender: FDA-CTU
  Company Number: None

PATIENT
  Sex: Male

DRUGS (11)
  1. LENALIDOMIDE [Suspect]
     Active Substance: LENALIDOMIDE
     Indication: Plasma cell myeloma
     Dosage: FREQUENCY : DAILY;?
     Dates: start: 20250430
  2. ACYCLOVIR TAB [Concomitant]
  3. ASPIRIN LOW TAB [Concomitant]
  4. ATORVASTATIN [Concomitant]
     Active Substance: ATORVASTATIN
  5. CLOPIDOGREL TAB [Concomitant]
  6. DARZALEX SOL FASPRO [Concomitant]
  7. DEXAMETHASON TAB [Concomitant]
  8. EPIPEN 2-PAK INJ [Concomitant]
  9. ESCITALOPRAM [Concomitant]
     Active Substance: ESCITALOPRAM OXALATE
  10. LENALIDOMIDE [Concomitant]
     Active Substance: LENALIDOMIDE
  11. LEVOFLOXACIN TAB [Concomitant]

REACTIONS (1)
  - Hospitalisation [None]
